FAERS Safety Report 4981072-2 (Version None)
Quarter: 2006Q2

REPORT INFORMATION
  Report Type: 
  Country: None (occurrence: None)
  Receive Date: 20060421
  Receipt Date: 20060407
  Transmission Date: 20061013
  Serious: Yes (Hospitalization, Other)
  Sender: FDA-Public Use
  Company Number: 2006SS000044

PATIENT
  Age: 67 Year
  Sex: Male

DRUGS (2)
  1. MYOBLOC [Suspect]
     Indication: DYSTONIA
     Dosage: IM
     Route: 030
     Dates: start: 19990901, end: 20050914
  2. VICODIN [Concomitant]

REACTIONS (1)
  - LUNG NEOPLASM MALIGNANT [None]
